FAERS Safety Report 17961654 (Version 1)
Quarter: 2020Q2

REPORT INFORMATION
  Report Type: Spontaneous
  Country: US (occurrence: US)
  Receive Date: 20200629
  Receipt Date: 20200629
  Transmission Date: 20200714
  Serious: Yes (Disabling, Other)
  Sender: FDA-Public Use
  Company Number: None

PATIENT
  Sex: Female
  Weight: 120.6 kg

DRUGS (1)
  1. METFORMIN HYDROCHLORIDE EXTENDED RELEASE TABLETS USP [Suspect]
     Active Substance: METFORMIN HYDROCHLORIDE
     Indication: DIABETES MELLITUS
     Dosage: ?          QUANTITY:2 TABLET(S);?
     Route: 048
     Dates: start: 20200101, end: 20200620

REACTIONS (5)
  - Lethargy [None]
  - Asthma [None]
  - Dizziness [None]
  - Nausea [None]
  - Abdominal pain upper [None]
